FAERS Safety Report 12825355 (Version 2)
Quarter: 2016Q4

REPORT INFORMATION
  Report Type: Report from Study
  Country: DE (occurrence: DE)
  Receive Date: 20161007
  Receipt Date: 20161206
  Transmission Date: 20170207
  Serious: Yes (Other)
  Sender: FDA-Public Use
  Company Number: DE-B.I. PHARMACEUTICALS,INC./RIDGEFIELD-2016-BI-60382BI

PATIENT
  Age: 71 Year
  Sex: Female
  Weight: 97.2 kg

DRUGS (1)
  1. BLINDED LINAGLIPTIN [Suspect]
     Active Substance: LINAGLIPTIN
     Indication: DIABETES MELLITUS
     Route: 048
     Dates: start: 20111110, end: 20150313

REACTIONS (1)
  - Macular degeneration [Recovered/Resolved with Sequelae]

NARRATIVE: CASE EVENT DATE: 20160422
